FAERS Safety Report 6401377-8 (Version None)
Quarter: 2009Q4

REPORT INFORMATION
  Report Type: 
  Country: None (occurrence: None)
  Receive Date: 20091015
  Receipt Date: 20090922
  Transmission Date: 20100525
  Serious: No
  Sender: FDA-Public Use
  Company Number: US-BAYER-200933581NA

PATIENT
  Age: 19 Year
  Sex: Female
  Weight: 54 kg

DRUGS (1)
  1. MIRENA [Suspect]
     Indication: CONTRACEPTION
     Dosage: CONTINUOUS DELIVERY
     Route: 015
     Dates: start: 20090427, end: 20090706

REACTIONS (2)
  - HORMONE LEVEL ABNORMAL [None]
  - SKIN REACTION [None]
